FAERS Safety Report 13987599 (Version 2)
Quarter: 2017Q3

REPORT INFORMATION
  Report Type: Spontaneous
  Country: US (occurrence: US)
  Receive Date: 20170919
  Receipt Date: 20170920
  Transmission Date: 20171128
  Serious: Yes (Other)
  Sender: FDA-Public Use
  Company Number: US-CELGENEUS-USA-20170904042

PATIENT
  Sex: Female
  Weight: 57.2 kg

DRUGS (3)
  1. REVLIMID [Suspect]
     Active Substance: LENALIDOMIDE
     Dosage: 10 MILLIGRAM
     Route: 048
     Dates: start: 201405
  2. REVLIMID [Suspect]
     Active Substance: LENALIDOMIDE
     Dosage: 15MG-10MG
     Route: 048
     Dates: start: 201110
  3. REVLIMID [Suspect]
     Active Substance: LENALIDOMIDE
     Indication: PLASMA CELL MYELOMA
     Dosage: 25 MILLIGRAM
     Route: 048
     Dates: start: 201011

REACTIONS (2)
  - Upper limb fracture [Unknown]
  - Plasma cell myeloma [Unknown]
